FAERS Safety Report 15347500 (Version 1)
Quarter: 2018Q3

REPORT INFORMATION
  Report Type: Spontaneous
  Country: US (occurrence: US)
  Receive Date: 20180904
  Receipt Date: 20180904
  Transmission Date: 20181010
  Serious: No
  Sender: FDA-Public Use
  Company Number: US-BAYER-2018-164973

PATIENT
  Age: 69 Year
  Sex: Female

DRUGS (2)
  1. CLARITIN [Suspect]
     Active Substance: LORATADINE
     Indication: NASOPHARYNGITIS
  2. CLARITIN [Suspect]
     Active Substance: LORATADINE
     Indication: HYPERSENSITIVITY
     Dosage: 0.5 DF, UNK
     Route: 048
     Dates: start: 20180831

REACTIONS (2)
  - Dizziness [None]
  - Incorrect dose administered [None]

NARRATIVE: CASE EVENT DATE: 20180831
